FAERS Safety Report 10944683 (Version 2)
Quarter: 2016Q2

REPORT INFORMATION
  Report Type: Spontaneous
  Country: US (occurrence: US)
  Receive Date: 20150323
  Receipt Date: 20160411
  Transmission Date: 20160815
  Serious: No
  Sender: FDA-Public Use
  Company Number: US-PFIZER INC-2015097364

PATIENT
  Age: 67 Year
  Sex: Female
  Weight: 86.17 kg

DRUGS (9)
  1. LYRICA [Suspect]
     Active Substance: PREGABALIN
     Indication: POST HERPETIC NEURALGIA
     Dosage: 100 MG, 2X/DAY
     Route: 048
     Dates: start: 20140728
  2. ZANTAC [Concomitant]
     Active Substance: RANITIDINE HYDROCHLORIDE
     Dosage: 150 MG, 1X/DAY (1 TABLET AT BEDTIME)
     Dates: start: 20140515
  3. MECLIZINE HCL [Concomitant]
     Dosage: 25 MG, AS NEEDED (1 TABLET EVERY SIX HOURS PRN)
     Dates: start: 20140515
  4. BACTRIM DS [Concomitant]
     Active Substance: SULFAMETHOXAZOLE\TRIMETHOPRIM
     Dosage: (800-160MG 1 TABLET), DAILY
     Dates: start: 20140515
  5. ZYRTEC [Concomitant]
     Active Substance: CETIRIZINE HYDROCHLORIDE
     Dosage: 10 MG, AS NEEDED (10MG 1 TABLET DAILY PRN)
     Dates: start: 20140515
  6. IBUPROFEN. [Concomitant]
     Active Substance: IBUPROFEN
     Dosage: 800 MG, AS NEEDED (1 TABLET THREE TIMES DAILY PRN)
     Dates: start: 20140515
  7. FLEXERIL [Concomitant]
     Active Substance: CYCLOBENZAPRINE HYDROCHLORIDE
     Dosage: 10 MG, 3X/DAY (1 TABLET THREE TIMES DAILY)
     Dates: start: 20140515
  8. LYRICA [Suspect]
     Active Substance: PREGABALIN
     Indication: NEUROPATHY PERIPHERAL
     Dosage: 100 MG, 2X/DAY, (50MG TWO IN MORNING AND TWO IN EVENING)
     Route: 048
  9. LYRICA [Suspect]
     Active Substance: PREGABALIN
     Indication: OSTEOARTHRITIS
     Dosage: 100 MG, 2X/DAY (1 CAPSULE TWICE A DAY )
     Route: 048

REACTIONS (1)
  - Nasopharyngitis [Not Recovered/Not Resolved]
